FAERS Safety Report 4542329-2 (Version None)
Quarter: 2004Q4

REPORT INFORMATION
  Report Type: 
  Country: None (occurrence: None)
  Receive Date: 20041227
  Receipt Date: 20041129
  Transmission Date: 20050328
  Serious: Yes (Hospitalization, Other)
  Sender: FDA-Public Use
  Company Number: 2001040224US

PATIENT
  Age: 46 Year
  Sex: Female

DRUGS (7)
  1. DEPO-MEDROL [Suspect]
     Indication: BACK PAIN
     Dosage: 80 MG (80 MG, SINGLE), EPIDURAL
     Route: 008
     Dates: start: 20000619, end: 20000619
  2. LIDOCAINE HYDROCHLORIDE [Concomitant]
  3. EPINEPHRINE [Concomitant]
  4. SODIUM CHLORIDE 0.9% [Concomitant]
  5. PROPACET 100 [Concomitant]
  6. DILTIAZEM HYDROCHLORIDE [Concomitant]
  7. FUROSEMIDE [Concomitant]

REACTIONS (46)
  - ALANINE AMINOTRANSFERASE INCREASED [None]
  - ANXIETY [None]
  - ASPARTATE AMINOTRANSFERASE INCREASED [None]
  - BLOOD LACTATE DEHYDROGENASE INCREASED [None]
  - BONE PAIN [None]
  - BRUXISM [None]
  - CONDITION AGGRAVATED [None]
  - DISCOMFORT [None]
  - DIZZINESS [None]
  - DYSURIA [None]
  - EAR DISORDER [None]
  - EMOTIONAL DISTRESS [None]
  - FIBROMYALGIA [None]
  - FLUID RETENTION [None]
  - GINGIVAL BLEEDING [None]
  - HAEMORRHAGE [None]
  - HEPATITIS C [None]
  - HYPERAESTHESIA [None]
  - IMPAIRED HEALING [None]
  - IMPAIRED SELF-CARE [None]
  - INFECTION [None]
  - INJURY [None]
  - MEAN CELL HAEMOGLOBIN INCREASED [None]
  - MEAN CELL VOLUME INCREASED [None]
  - MEAN PLATELET VOLUME DECREASED [None]
  - MOBILITY DECREASED [None]
  - MYOPATHY STEROID [None]
  - NERVE INJURY [None]
  - OXYGEN SATURATION DECREASED [None]
  - PAIN [None]
  - PAIN OF SKIN [None]
  - PARALYSIS [None]
  - PCO2 DECREASED [None]
  - RED BLOOD CELL COUNT DECREASED [None]
  - RHEUMATOID ARTHRITIS [None]
  - SENSORY DISTURBANCE [None]
  - SKIN BLEEDING [None]
  - SKIN BURNING SENSATION [None]
  - SKIN DISCOLOURATION [None]
  - SKIN TIGHTNESS [None]
  - SPINAL OSTEOARTHRITIS [None]
  - STICKY SKIN [None]
  - UNEVALUABLE EVENT [None]
  - VISUAL DISTURBANCE [None]
  - VOMITING [None]
  - WEIGHT INCREASED [None]
